FAERS Safety Report 22838501 (Version 13)
Quarter: 2023Q4

REPORT INFORMATION
  Report Type: Report from Study
  Country: CN (occurrence: CN)
  Receive Date: 20230818
  Receipt Date: 20231127
  Transmission Date: 20240110
  Serious: Yes (Hospitalization, Other)
  Sender: FDA-Public Use
  Company Number: CN-009507513-2307CHN010451

PATIENT
  Age: 63 Year
  Sex: Male

DRUGS (27)
  1. PEMBROLIZUMAB [Suspect]
     Active Substance: PEMBROLIZUMAB
     Indication: Non-small cell lung cancer metastatic
     Dosage: 200 MILLIGRAM, Q3W
     Route: 042
     Dates: start: 20230609, end: 20230629
  2. SACITUZUMAB GOVITECAN-HZIY [Suspect]
     Active Substance: SACITUZUMAB GOVITECAN-HZIY
     Indication: Non-small cell lung cancer metastatic
     Dosage: 10 MILLIGRAM/KILOGRAM, ON DAYS 1 AND 8 Q3W
     Route: 042
     Dates: start: 20230609, end: 20230615
  3. SACITUZUMAB GOVITECAN-HZIY [Suspect]
     Active Substance: SACITUZUMAB GOVITECAN-HZIY
     Dosage: 10 MILLIGRAM/KILOGRAM, ON DAYS 1 AND 8 Q3W
     Route: 042
     Dates: start: 20230629, end: 20230706
  4. MA REN RUN CHANG [Concomitant]
     Indication: Constipation
     Dosage: [8]  0.6 G DAILY, FREQ: QD
     Route: 048
     Dates: start: 20230609
  5. MA REN RUN CHANG [Concomitant]
     Dosage: [8]  0.6 G DAILY, FREQ: QD
     Route: 048
     Dates: start: 20230609
  6. OXYCODONE HYDROCHLORIDE [Concomitant]
     Active Substance: OXYCODONE HYDROCHLORIDE
     Indication: Arthralgia
     Dosage: [10]  60 MG DAILY, FREQ: BID
     Route: 048
     Dates: start: 20230518
  7. OXYCODONE HYDROCHLORIDE [Concomitant]
     Active Substance: OXYCODONE HYDROCHLORIDE
     Indication: Neck pain
     Dosage: [10]  60 MG DAILY, FREQ: BID; FORMULATION: CAPLET
     Route: 048
     Dates: start: 20230518
  8. OXYCODONE HYDROCHLORIDE [Concomitant]
     Active Substance: OXYCODONE HYDROCHLORIDE
     Dosage: [10]  60 MG DAILY, FREQ: BID; FORMULATION: CAPLET
     Route: 048
     Dates: start: 20230518
  9. OXYCODONE HYDROCHLORIDE [Concomitant]
     Active Substance: OXYCODONE HYDROCHLORIDE
     Route: 048
     Dates: start: 20230518
  10. AMLODIPINE BESYLATE [Concomitant]
     Active Substance: AMLODIPINE BESYLATE
     Indication: Hypertension
     Dosage: 5 MILLIGRAM, QD; FORMULATION: CAPLET
     Route: 048
     Dates: start: 20230630
  11. AMLODIPINE BESYLATE [Concomitant]
     Active Substance: AMLODIPINE BESYLATE
     Dosage: 5 MILLIGRAM, QD; FORMULATION: CAPLET
     Route: 048
     Dates: start: 20230518, end: 20230627
  12. HERBALS\DIAMMONIUM GLYCYRRHIZINATE [Concomitant]
     Active Substance: HERBALS\DIAMMONIUM GLYCYRRHIZINATE
     Indication: Prophylaxis
     Dosage: 150 MILLIGRAM, TID
     Route: 048
     Dates: start: 20230630
  13. HERBALS\DIAMMONIUM GLYCYRRHIZINATE [Concomitant]
     Active Substance: HERBALS\DIAMMONIUM GLYCYRRHIZINATE
     Dosage: 150 MILLIGRAM, TID
     Route: 048
     Dates: start: 20230609, end: 20230624
  14. ESOMEPRAZOLE MAGNESIUM [Concomitant]
     Active Substance: ESOMEPRAZOLE\ESOMEPRAZOLE MAGNESIUM\ESOMEPRAZOLE MAGNESIUM DIHYDRATE
     Indication: Prophylaxis
     Dosage: 20 MILLIGRAM, QD
     Route: 042
     Dates: start: 20230630
  15. ESOMEPRAZOLE MAGNESIUM [Concomitant]
     Active Substance: ESOMEPRAZOLE\ESOMEPRAZOLE MAGNESIUM\ESOMEPRAZOLE MAGNESIUM DIHYDRATE
     Dosage: 20 MILLIGRAM, QD; FORMULATION: CAPLET
     Route: 042
     Dates: start: 20230609, end: 20230624
  16. CYSTEINE;GLYCYRRHIZIC ACID [Concomitant]
     Indication: Prophylaxis
     Dosage: 100 MILLILITER, ONCE
     Route: 042
     Dates: start: 20230706, end: 20230706
  17. CYSTEINE;GLYCYRRHIZIC ACID [Concomitant]
     Dosage: 100 MILLILITER, ONCE
     Route: 042
     Dates: start: 20230720, end: 20230720
  18. CYSTEINE;GLYCYRRHIZIC ACID [Concomitant]
     Dosage: 100 MILLILITER, ONCE
     Route: 042
     Dates: start: 20230615, end: 20230615
  19. DIPHENHYDRAMINE HYDROCHLORIDE [Concomitant]
     Active Substance: DIPHENHYDRAMINE HYDROCHLORIDE
     Indication: Allergy prophylaxis
     Dosage: 20 MILLIGRAM, ONCE
     Route: 030
     Dates: start: 20230706, end: 20230706
  20. DEXAMETHASONE SODIUM PHOSPHATE [Concomitant]
     Active Substance: DEXAMETHASONE PHOSPHATE\DEXAMETHASONE SODIUM PHOSPHATE
     Indication: Prophylaxis
     Dosage: 1 MILLILITER, ONCE
     Route: 042
     Dates: start: 20230706, end: 20230706
  21. ESOMEPRAZOLE SODIUM [Concomitant]
     Active Substance: ESOMEPRAZOLE SODIUM
     Indication: Prophylaxis
     Dosage: 40 MILLIGRAM, ONCE
     Route: 042
     Dates: start: 20230706, end: 20230706
  22. ESOMEPRAZOLE SODIUM [Concomitant]
     Active Substance: ESOMEPRAZOLE SODIUM
     Dosage: 40 MILLIGRAM, ONCE
     Route: 042
     Dates: start: 20230720, end: 20230720
  23. ESOMEPRAZOLE SODIUM [Concomitant]
     Active Substance: ESOMEPRAZOLE SODIUM
     Dosage: 40 MILLIGRAM, ONCE
     Route: 042
     Dates: start: 20230615, end: 20230615
  24. AZASETRON HYDROCHLORIDE [Concomitant]
     Active Substance: AZASETRON HYDROCHLORIDE
     Indication: Vomiting
     Dosage: 2 MILLILITER, ONCE
     Route: 042
     Dates: start: 20230706, end: 20230706
  25. AZASETRON HYDROCHLORIDE [Concomitant]
     Active Substance: AZASETRON HYDROCHLORIDE
     Dosage: 2 MILLILITER, ONCE
     Route: 042
     Dates: start: 20230615, end: 20230615
  26. SULFAMETHOXAZOLE AND TRIMETHOPRIM [Concomitant]
     Active Substance: SULFAMETHOXAZOLE\TRIMETHOPRIM
     Indication: Prophylaxis
  27. MA REN [Concomitant]
     Indication: Constipation
     Dosage: 0.6 GRAM, QD
     Route: 048
     Dates: start: 20230609, end: 20230614

REACTIONS (2)
  - Immune-mediated hepatitis [Recovered/Resolved]
  - Immune-mediated pancreatitis [Recovered/Resolved]

NARRATIVE: CASE EVENT DATE: 20230628
